FAERS Safety Report 8520334-9 (Version None)
Quarter: 2012Q3

REPORT INFORMATION
  Report Type: 
  Country: None (occurrence: None)
  Receive Date: 20120713
  Receipt Date: 20120713
  Transmission Date: 20120928
  Serious: No
  Sender: FDA-Public Use
  Company Number: None

PATIENT
  Age: 47 Year
  Sex: Male

DRUGS (1)
  1. DEPAKOTE ER [Suspect]
     Indication: EPILEPSY
     Dosage: 1500MG HS PO
     Route: 048
     Dates: start: 20090421, end: 20090506

REACTIONS (4)
  - ANGER [None]
  - PRODUCT SUBSTITUTION ISSUE [None]
  - IRRITABILITY [None]
  - SIMPLE PARTIAL SEIZURES [None]
